FAERS Safety Report 18390022 (Version 1)
Quarter: 2020Q4

REPORT INFORMATION
  Report Type: Spontaneous
  Country: TR (occurrence: TR)
  Receive Date: 20201015
  Receipt Date: 20201015
  Transmission Date: 20210114
  Serious: Yes (Other)
  Sender: FDA-Public Use
  Company Number: TR-009507513-2010TUR004815

PATIENT
  Age: 44 Year
  Sex: Male

DRUGS (2)
  1. NACOSEL [Concomitant]
     Dosage: 300 MG/3 ML
     Dates: start: 20200926
  2. INVANZ [Suspect]
     Active Substance: ERTAPENEM SODIUM
     Dosage: 1 GRAM, ONCE
     Dates: start: 20200928, end: 20200928

REACTIONS (4)
  - Rash [Recovering/Resolving]
  - Hypotension [Recovering/Resolving]
  - Burning sensation [Recovering/Resolving]
  - Dyspnoea [Recovering/Resolving]

NARRATIVE: CASE EVENT DATE: 20200928
